FAERS Safety Report 15215944 (Version 1)
Quarter: 2018Q3

REPORT INFORMATION
  Report Type: Spontaneous
  Country: ZA (occurrence: ZA)
  Receive Date: 20180730
  Receipt Date: 20180730
  Transmission Date: 20181010
  Serious: Yes (Other)
  Sender: FDA-Public Use
  Company Number: ZA-PFIZER INC-2018300167

PATIENT
  Age: 68 Year
  Sex: Male

DRUGS (3)
  1. VENTEZE /00139501/ [Suspect]
     Active Substance: ALBUTEROL
     Dosage: 100 UG, UNK
  2. ASPAVOR [Suspect]
     Active Substance: ATORVASTATIN
     Dosage: 10 MG, UNK
  3. SEREFLO [Suspect]
     Active Substance: FLUTICASONE PROPIONATE\SALMETEROL XINAFOATE
     Dosage: 25/50 UG

REACTIONS (3)
  - Influenza [Unknown]
  - Cough [Unknown]
  - Thrombosis [Unknown]
